FAERS Safety Report 11050668 (Version 1)
Quarter: 2015Q2

REPORT INFORMATION
  Report Type: Spontaneous
  Country: US (occurrence: None)
  Receive Date: 20150417
  Receipt Date: 20150417
  Transmission Date: 20150821
  Serious: Yes (Other)
  Sender: FDA-Public Use
  Company Number: 2015COV00084

PATIENT

DRUGS (1)
  1. DIGOXIN (DIGOXIN) [Suspect]
     Active Substance: DIGOXIN

REACTIONS (1)
  - Electrocardiogram QRS complex prolonged [None]
